FAERS Safety Report 5594151-6 (Version None)
Quarter: 2008Q1

REPORT INFORMATION
  Report Type: 
  Country: None (occurrence: None)
  Receive Date: 20080115
  Receipt Date: 20080104
  Transmission Date: 20080703
  Serious: Yes (Other)
  Sender: FDA-Public Use
  Company Number: WAES 0801USA00880

PATIENT
  Age: 14 Year
  Sex: Female
  Weight: 42.6381 kg

DRUGS (5)
  1. LYRICA [Suspect]
     Indication: FIBROMYALGIA
     Dosage: 150 MG
     Dates: start: 20070101
  2. IBUPROFEN [Suspect]
     Indication: FIBROMYALGIA
  3. SYNTHROID [Concomitant]
  4. INDOMETHACIN [Suspect]
     Dates: start: 20070101
  5. CYMBALTA [Suspect]

REACTIONS (9)
  - CONDITION AGGRAVATED [None]
  - MIGRAINE [None]
  - MUSCLE SPASMS [None]
  - MUSCLE TWITCHING [None]
  - PAIN [None]
  - PAPILLOEDEMA [None]
  - VISUAL DISTURBANCE [None]
  - VISUAL FIELD DEFECT [None]
  - WISDOM TEETH REMOVAL [None]
